FAERS Safety Report 5028778-7 (Version None)
Quarter: 2006Q2

REPORT INFORMATION
  Report Type: 
  Country: None (occurrence: None)
  Receive Date: 20060501
  Receipt Date: 20060329
  Transmission Date: 20061013
  Serious: No
  Sender: FDA-Public Use
  Company Number: 200613037US

PATIENT
  Sex: Female

DRUGS (4)
  1. KETEK [Suspect]
     Indication: SINUSITIS
     Dosage: 400 MG PO
     Route: 048
  2. LIPITOR [Concomitant]
  3. BIRTH CONTROL [Concomitant]
  4. THYROID TAB [Concomitant]

REACTIONS (2)
  - DIARRHOEA [None]
  - MEDICATION RESIDUE [None]
